FAERS Safety Report 8558363-1 (Version None)
Quarter: 2012Q3

REPORT INFORMATION
  Report Type: 
  Country: None (occurrence: None)
  Receive Date: 20120727
  Receipt Date: 20120727
  Transmission Date: 20120928
  Serious: Yes (Other)
  Sender: FDA-Public Use
  Company Number: None

PATIENT
  Age: 47 Year
  Sex: Male

DRUGS (1)
  1. COPAXONE 20MG DAILY SUBCUTANEOUSLY [Suspect]
     Indication: MULTIPLE SCLEROSIS
     Dosage: 20 MG, DAILY, SUBCUTANEOUS
     Route: 058

REACTIONS (1)
  - LYMPHOMA [None]
